FAERS Safety Report 12169221 (Version 1)
Quarter: 2016Q1

REPORT INFORMATION
  Report Type: Report from Study
  Country: US (occurrence: US)
  Receive Date: 20160310
  Receipt Date: 20160310
  Transmission Date: 20160526
  Serious: No
  Sender: FDA-Public Use
  Company Number: GXBR2016US000744

PATIENT
  Sex: Male

DRUGS (1)
  1. OMNITROPE [Suspect]
     Active Substance: SOMATROPIN
     Indication: GROWTH HORMONE DEFICIENCY
     Dosage: 0.7 MG, QD
     Route: 065
     Dates: start: 201411

REACTIONS (3)
  - Fear of injection [Not Recovered/Not Resolved]
  - Needle issue [Not Recovered/Not Resolved]
  - Screaming [Not Recovered/Not Resolved]
